FAERS Safety Report 24596204 (Version 1)
Quarter: 2024Q4

REPORT INFORMATION
  Report Type: Spontaneous
  Country: PT (occurrence: PT)
  Receive Date: 20241110
  Receipt Date: 20241110
  Transmission Date: 20250115
  Serious: Yes (Other)
  Sender: ACCORD
  Company Number: PT-Accord-454441

PATIENT
  Age: 51 Year
  Sex: Male

DRUGS (2)
  1. CISPLATIN [Suspect]
     Active Substance: CISPLATIN
     Indication: Rectal adenocarcinoma
     Dosage: 25 MG/M2/L
     Route: 033
     Dates: start: 202209
  2. MITOMYCIN [Suspect]
     Active Substance: MITOMYCIN
     Indication: Rectal adenocarcinoma
     Dosage: 3.3 MG/M2/L
     Route: 033
     Dates: start: 202209

REACTIONS (2)
  - Acute kidney injury [Recovered/Resolved]
  - Hypovolaemic shock [Unknown]

NARRATIVE: CASE EVENT DATE: 20220101
